FAERS Safety Report 9659692 (Version 3)
Quarter: 2013Q4

REPORT INFORMATION
  Report Type: Report from Study
  Country: US (occurrence: US)
  Receive Date: 20131031
  Receipt Date: 20131129
  Transmission Date: 20140711
  Serious: Yes (Hospitalization)
  Sender: FDA-Public Use
  Company Number: US-JNJFOC-20131015804

PATIENT
  Age: 17 Year
  Sex: Female
  Weight: 66.4 kg

DRUGS (14)
  1. REMICADE [Suspect]
     Indication: INFLAMMATORY BOWEL DISEASE
     Route: 042
     Dates: start: 20110317
  2. REMICADE [Suspect]
     Indication: INFLAMMATORY BOWEL DISEASE
     Route: 042
     Dates: start: 20130316, end: 20130408
  3. 5-ASA [Concomitant]
     Indication: INFLAMMATORY BOWEL DISEASE
     Route: 048
  4. PREDNISONE [Concomitant]
     Route: 065
  5. ERGOCALCIFEROL [Concomitant]
     Route: 065
  6. RANITIDINE [Concomitant]
     Route: 065
  7. AMITRIPTYLINE [Concomitant]
     Route: 065
  8. CLONIDINE [Concomitant]
     Route: 065
  9. NEURONTIN [Concomitant]
     Route: 065
  10. MIRALAX [Concomitant]
     Route: 065
  11. ONDANSETRON [Concomitant]
     Route: 065
  12. VANCOMYCIN [Concomitant]
     Route: 065
  13. HUMIRA [Concomitant]
     Indication: INFLAMMATORY BOWEL DISEASE
     Route: 065
  14. NORCO [Concomitant]
     Route: 065

REACTIONS (1)
  - Urinary tract infection [Recovered/Resolved]
